FAERS Safety Report 11368994 (Version 1)
Quarter: 2015Q3

REPORT INFORMATION
  Report Type: Spontaneous
  Country: BR (occurrence: BR)
  Receive Date: 20150812
  Receipt Date: 20150812
  Transmission Date: 20151125
  Serious: Yes (Other)
  Sender: FDA-Public Use
  Company Number: PHHY2015BR096463

PATIENT
  Sex: Female

DRUGS (4)
  1. ZOLADEX [Concomitant]
     Active Substance: GOSERELIN ACETATE
     Indication: MENOPAUSE DELAYED
     Dosage: 1 DF, EVERY 3 MONTHS
     Route: 030
  2. AROMAZIN [Concomitant]
     Indication: BREAST CANCER
     Dosage: 1 DF, QD
     Route: 048
     Dates: start: 201410
  3. ZOMETA [Suspect]
     Active Substance: ZOLEDRONIC ACID
     Indication: BREAST CANCER
     Dosage: 1 DF, PER MONTH
     Route: 042
  4. ZOMETA [Suspect]
     Active Substance: ZOLEDRONIC ACID
     Indication: METASTASES TO BONE

REACTIONS (3)
  - Pneumonitis [Unknown]
  - Anxiety [Unknown]
  - Oesophagitis [Unknown]

NARRATIVE: CASE EVENT DATE: 2014
